FAERS Safety Report 8488183-8 (Version None)
Quarter: 2012Q2

REPORT INFORMATION
  Report Type: 
  Country: None (occurrence: None)
  Receive Date: 20120621
  Receipt Date: 20120612
  Transmission Date: 20120825
  Serious: Yes (Hospitalization, Other)
  Sender: FDA-Public Use
  Company Number: 2012PROUSA01394

PATIENT
  Age: 75 Year
  Sex: Male
  Weight: 68.9 kg

DRUGS (1)
  1. PROVENGE [Suspect]
     Indication: PROSTATE CANCER METASTATIC
     Dosage: 250 ML, SINGLE, INTRAVENOUS
     Route: 042
     Dates: start: 20120402, end: 20120402

REACTIONS (8)
  - URINARY TRACT INFECTION [None]
  - UNRESPONSIVE TO STIMULI [None]
  - METASTASES TO LIVER [None]
  - FALL [None]
  - HYPOTENSION [None]
  - PROSTATE CANCER METASTATIC [None]
  - NEOPLASM PROGRESSION [None]
  - HEAD INJURY [None]
